FAERS Safety Report 15214755 (Version 1)
Quarter: 2018Q3

REPORT INFORMATION
  Report Type: Spontaneous
  Country: US (occurrence: US)
  Receive Date: 20180703
  Receipt Date: 20180703
  Transmission Date: 20181010
  Serious: No
  Sender: FDA-Public Use
  Company Number: None

PATIENT
  Age: 46 Year
  Sex: Female
  Weight: 52.62 kg

DRUGS (4)
  1. WOMEN^S DAILY VITAMINS [Concomitant]
  2. TROKENDI [Concomitant]
     Active Substance: TOPIRAMATE
  3. PROBIOTICS [Concomitant]
     Active Substance: PROBIOTICS NOS
  4. MIRENA [Suspect]
     Active Substance: LEVONORGESTREL
     Dates: start: 20180605

REACTIONS (2)
  - Anxiety [None]
  - Depression [None]

NARRATIVE: CASE EVENT DATE: 20180701
